FAERS Safety Report 15222409 (Version 1)
Quarter: 2018Q4

REPORT INFORMATION
  Report Type: Spontaneous
  Country: GR (occurrence: GR)
  Receive Date: 20180731
  Receipt Date: 20180731
  Transmission Date: 20190204
  Serious: Yes (Other)
  Sender: FDA-Public Use
  Company Number: GR-PFIZER INC-2018300755

PATIENT
  Age: 74 Year
  Sex: Female

DRUGS (2)
  1. PREGABALIN. [Suspect]
     Active Substance: PREGABALIN
     Indication: RHEUMATOID ARTHRITIS
     Dosage: 1 DF, 2X/DAY (PER 12 H)
     Route: 048
  2. TAMVELIER [Suspect]
     Active Substance: MOXIFLOXACIN HYDROCHLORIDE
     Dosage: 1 DF, 1X/DAY
     Route: 048

REACTIONS (5)
  - Confusional state [Not Recovered/Not Resolved]
  - Seizure [Not Recovered/Not Resolved]
  - Balance disorder [Not Recovered/Not Resolved]
  - Product use in unapproved indication [Unknown]
  - Nervousness [Not Recovered/Not Resolved]
